FAERS Safety Report 6131991-9 (Version None)
Quarter: 2009Q1

REPORT INFORMATION
  Report Type: 
  Country: None (occurrence: None)
  Receive Date: 20090325
  Receipt Date: 20090316
  Transmission Date: 20090719
  Serious: Yes (Other)
  Sender: FDA-Public Use
  Company Number: PHHY2009CA09959

PATIENT
  Sex: Male

DRUGS (3)
  1. DIOVAN [Suspect]
     Dosage: 1 TABLET (160 MG) DAILY
     Route: 048
  2. NORVASC [Concomitant]
     Dosage: 5 MG, UNK
  3. THIAZIDES [Concomitant]
     Dosage: 12.5 MG (1/2 TABLET DAILY WITH DIOVAN)

REACTIONS (8)
  - BLOOD PRESSURE INCREASED [None]
  - DIPLOPIA [None]
  - DISORIENTATION [None]
  - DIZZINESS [None]
  - FEELING ABNORMAL [None]
  - HEADACHE [None]
  - NAUSEA [None]
  - TRANSIENT ISCHAEMIC ATTACK [None]
